FAERS Safety Report 8802022 (Version 3)
Quarter: 2012Q4

REPORT INFORMATION
  Report Type: 
  Country: US (occurrence: US)
  Receive Date: 20120921
  Receipt Date: 20121025
  Transmission Date: 20130627
  Serious: Yes (Other)
  Sender: FDA-Public Use
  Company Number: PHEH2012US018257

PATIENT
  Sex: Female
  Weight: 70 kg

DRUGS (1)
  1. GLEEVEC [Suspect]
     Indication: CHRONIC MYELOID LEUKAEMIA
     Dosage: 200 mg, QD
     Route: 048
     Dates: start: 2012

REACTIONS (2)
  - Heart valve incompetence [Recovered/Resolved]
  - Concomitant disease aggravated [Recovered/Resolved]
